FAERS Safety Report 13515383 (Version 1)
Quarter: 2017Q2

REPORT INFORMATION
  Report Type: Spontaneous
  Country: US (occurrence: US)
  Receive Date: 20170504
  Receipt Date: 20170504
  Transmission Date: 20170830
  Serious: Yes (Other)
  Sender: FDA-Public Use
  Company Number: US-BAUSCH-BL-2016-016807

PATIENT
  Age: 46 Year
  Sex: Male

DRUGS (1)
  1. ZYCLARA [Suspect]
     Active Substance: IMIQUIMOD
     Indication: PRECANCEROUS CELLS PRESENT
     Route: 061
     Dates: start: 20141226, end: 20150415

REACTIONS (7)
  - Skin exfoliation [Unknown]
  - Localised infection [Unknown]
  - Peripheral swelling [Unknown]
  - Prostatic specific antigen increased [Unknown]
  - Furuncle [Not Recovered/Not Resolved]
  - Eye swelling [Unknown]
  - Squamous cell carcinoma of skin [Unknown]

NARRATIVE: CASE EVENT DATE: 201601
